FAERS Safety Report 16618605 (Version 2)
Quarter: 2020Q2

REPORT INFORMATION
  Report Type: Spontaneous
  Country: US (occurrence: US)
  Receive Date: 20190723
  Receipt Date: 20200604
  Transmission Date: 20200713
  Serious: Yes (Other)
  Sender: FDA-Public Use
  Company Number: US-PFIZER INC-2019311725

PATIENT
  Age: 50 Year
  Sex: Female

DRUGS (1)
  1. XELJANZ XR [Suspect]
     Active Substance: TOFACITINIB CITRATE
     Indication: RHEUMATOID ARTHRITIS
     Dosage: 11 MG, DAILY
     Route: 048
     Dates: start: 201901

REACTIONS (5)
  - Eye haemorrhage [Unknown]
  - Vulvovaginal candidiasis [Unknown]
  - Feeling abnormal [Recovered/Resolved]
  - Fungal infection [Recovered/Resolved]
  - Anal fungal infection [Unknown]

NARRATIVE: CASE EVENT DATE: 2019
